FAERS Safety Report 8355964 (Version 3)
Quarter: 2014Q1

REPORT INFORMATION
  Report Type: Spontaneous
  Country: GB (occurrence: GB)
  Receive Date: 20120126
  Receipt Date: 20140128
  Transmission Date: 20141002
  Serious: Yes (Hospitalization, Disabling)
  Sender: FDA-Public Use
  Company Number: GB-WATSON-2012-00640

PATIENT
  Age: 81 Year
  Sex: Male
  Weight: 62 kg

DRUGS (1)
  1. GABAPENTIN (UNKNOWN) [Suspect]
     Indication: DIABETIC NEUROPATHY
     Dosage: 100 MG, TID
     Route: 048
     Dates: start: 20110630, end: 20110630

REACTIONS (13)
  - Cerebral infarction [Unknown]
  - Confusional state [Recovered/Resolved]
  - Sedation [Unknown]
  - Fatigue [Recovered/Resolved]
  - Speech disorder [Unknown]
  - Vomiting [Recovered/Resolved]
  - Hypotension [Recovered/Resolved]
  - Amnesia [Unknown]
  - Mental impairment [Unknown]
  - Pyrexia [Recovered/Resolved]
  - Headache [Recovered/Resolved]
  - Bradycardia [Recovered/Resolved]
  - Thinking abnormal [Not Recovered/Not Resolved]
